FAERS Safety Report 11440090 (Version 3)
Quarter: 2016Q1

REPORT INFORMATION
  Report Type: Report from Study
  Country: US (occurrence: US)
  Receive Date: 20150901
  Receipt Date: 20160219
  Transmission Date: 20160525
  Serious: No
  Sender: FDA-Public Use
  Company Number: PHEH2015US008507

PATIENT
  Age: 59 Year
  Sex: Female

DRUGS (2)
  1. COSENTYX [Suspect]
     Active Substance: SECUKINUMAB
     Indication: PSORIASIS
     Dosage: 300 MG, QW
     Route: 058
     Dates: start: 20150411
  2. COSENTYX [Suspect]
     Active Substance: SECUKINUMAB
     Dosage: 300 MG, QMO
     Route: 058
     Dates: start: 20150821

REACTIONS (11)
  - Malaise [Unknown]
  - Pain in extremity [Recovered/Resolved]
  - Limb discomfort [Unknown]
  - Burning sensation [Unknown]
  - Psoriasis [Unknown]
  - Peripheral swelling [Recovered/Resolved]
  - Inappropriate schedule of drug administration [Unknown]
  - Influenza like illness [Not Recovered/Not Resolved]
  - Skin fissures [Unknown]
  - Urinary tract infection [Recovered/Resolved]
  - Visual impairment [Unknown]

NARRATIVE: CASE EVENT DATE: 20150428
